FAERS Safety Report 17963387 (Version 1)
Quarter: 2020Q2

REPORT INFORMATION
  Report Type: Spontaneous
  Country: CZ (occurrence: CZ)
  Receive Date: 20200630
  Receipt Date: 20200630
  Transmission Date: 20200714
  Serious: Yes (Disabling, Other)
  Sender: FDA-Public Use
  Company Number: NVSC2020CZ133149

PATIENT
  Age: 62 Year
  Sex: Male

DRUGS (7)
  1. ENZALUTAMIDE [Concomitant]
     Active Substance: ENZALUTAMIDE
     Indication: PROPHYLAXIS
     Dosage: 160 MG, QD
     Route: 065
  2. DOCETAXEL. [Suspect]
     Active Substance: DOCETAXEL
     Indication: HORMONE-REFRACTORY PROSTATE CANCER
     Dosage: THREE-WEEK CYCLE
     Route: 042
     Dates: start: 2015, end: 201512
  3. WARFARIN [Concomitant]
     Active Substance: WARFARIN
     Indication: DEEP VEIN THROMBOSIS
     Dosage: UNK
     Route: 065
     Dates: start: 2013
  4. WARFARIN [Concomitant]
     Active Substance: WARFARIN
     Indication: PULMONARY EMBOLISM
  5. ZOLEDRONIC ACID [Suspect]
     Active Substance: ZOLEDRONIC ACID
     Indication: ANTIANDROGEN THERAPY
     Dosage: 4 MG, Q4W
     Route: 065
     Dates: start: 2013
  6. PREDNISONE. [Suspect]
     Active Substance: PREDNISONE
     Indication: HORMONE-REFRACTORY PROSTATE CANCER
     Dosage: 10 MILLIGRAM DAILY;
     Route: 048
     Dates: start: 2015, end: 201512
  7. GOSERELINE [Concomitant]
     Active Substance: GOSERELIN
     Indication: ANTIANDROGEN THERAPY
     Dosage: 10.8 MG, 1X EVERY 12 WEEKS
     Route: 065

REACTIONS (5)
  - Decreased activity [Unknown]
  - Drug intolerance [Unknown]
  - Mental impairment [Unknown]
  - Mental disorder [Recovered/Resolved]
  - Physical disability [Unknown]

NARRATIVE: CASE EVENT DATE: 2015
